FAERS Safety Report 10250648 (Version 1)
Quarter: 2014Q2

REPORT INFORMATION
  Report Type: Spontaneous
  Country: GB (occurrence: GB)
  Receive Date: 20140620
  Receipt Date: 20140620
  Transmission Date: 20141212
  Serious: Yes (Other)
  Sender: FDA-Public Use
  Company Number: GB-GLAXOSMITHKLINE-B1004219A

PATIENT
  Sex: Male

DRUGS (2)
  1. BECONASE [Suspect]
     Indication: NASAL CONGESTION
     Dosage: 2SPR TWICE PER DAY
     Route: 045
     Dates: start: 201405
  2. QUININE SULPHATE [Concomitant]
     Indication: MUSCLE SPASMS

REACTIONS (3)
  - Deafness [Not Recovered/Not Resolved]
  - Hearing impaired [Not Recovered/Not Resolved]
  - Productive cough [Not Recovered/Not Resolved]
